FAERS Safety Report 10970134 (Version 1)
Quarter: 2015Q1

REPORT INFORMATION
  Report Type: Spontaneous
  Country: US (occurrence: None)
  Receive Date: 20150327
  Receipt Date: 20150327
  Transmission Date: 20150721
  Serious: Yes (Hospitalization)
  Sender: FDA-Public Use
  Company Number: LIT-15-0014-W

PATIENT
  Age: 67 Year
  Sex: Female

DRUGS (6)
  1. LEVOTHYROXINE [Concomitant]
     Active Substance: LEVOTHYROXINE
  2. PREDNISONE. [Concomitant]
     Active Substance: PREDNISONE
  3. AMLIDIPINE [Concomitant]
  4. LEVOFLOXACIN. [Suspect]
     Active Substance: LEVOFLOXACIN
     Indication: ENDOPHTHALMITIS
     Route: 048
  5. METOPROLOL [Concomitant]
     Active Substance: METOPROLOL
  6. MOXIFLOXACIN OPHTHALMIC SOLUTION [Concomitant]

REACTIONS (6)
  - Drug-induced liver injury [None]
  - Cholestasis [None]
  - Hepatotoxicity [None]
  - Jaundice [None]
  - Vanishing bile duct syndrome [None]
  - Portal fibrosis [None]

NARRATIVE: CASE EVENT DATE: 2014
